FAERS Safety Report 21278883 (Version 3)
Quarter: 2022Q4

REPORT INFORMATION
  Report Type: Spontaneous
  Country: BR (occurrence: BR)
  Receive Date: 20220901
  Receipt Date: 20221205
  Transmission Date: 20230113
  Serious: Yes (Other)
  Sender: FDA-Public Use
  Company Number: BR-CELLTRION INC.-2022BR014146

PATIENT

DRUGS (5)
  1. INFLIXIMAB [Suspect]
     Active Substance: INFLIXIMAB
     Indication: Crohn^s disease
     Dosage: 3 AMPOULES EVERY 4 WEEKS
     Route: 042
  2. INFLIXIMAB [Suspect]
     Active Substance: INFLIXIMAB
     Dosage: 3 AMPOULES ONCE A MONTH
     Route: 042
     Dates: start: 20220919
  3. INFLIXIMAB [Suspect]
     Active Substance: INFLIXIMAB
     Dosage: 3 AMPOULES ONCE A MONTH
     Route: 042
     Dates: start: 20221124
  4. AZATHIOPRINE [Concomitant]
     Active Substance: AZATHIOPRINE
     Indication: Crohn^s disease
     Dosage: 50 MG, 2 TABLETS A DAY
     Route: 048
     Dates: start: 2015
  5. VITAMIN D NOS [Concomitant]
     Active Substance: VITAMIN D NOS
     Indication: Vitamin D deficiency
     Dosage: 7000 IU, 1 TABLET PER WEEK
     Route: 048
     Dates: start: 2015

REACTIONS (5)
  - Diarrhoea [Recovered/Resolved]
  - Anal abscess [Unknown]
  - Intestinal resection [Unknown]
  - Treatment delayed [Unknown]
  - Off label use [Unknown]
